FAERS Safety Report 7656248-6 (Version None)
Quarter: 2011Q3

REPORT INFORMATION
  Report Type: 
  Country: None (occurrence: None)
  Receive Date: 20110729
  Receipt Date: 20110727
  Transmission Date: 20111222
  Serious: Yes (Hospitalization)
  Sender: FDA-Public Use
  Company Number: SP03836

PATIENT
  Age: 64 Year
  Sex: Male
  Weight: 88.905 kg

DRUGS (3)
  1. HYDROCHLOROTHIAZIDE [Concomitant]
  2. APRISO [Suspect]
     Indication: COLITIS ULCERATIVE
     Dosage: 0.375 GM, SEE TEXT), ORAL
     Route: 048
     Dates: start: 20110124, end: 20110201
  3. ATENOLOL [Concomitant]

REACTIONS (3)
  - MUSCLE SPASMS [None]
  - PAIN IN EXTREMITY [None]
  - RENAL FAILURE [None]
